FAERS Safety Report 8531707-2 (Version None)
Quarter: 2012Q3

REPORT INFORMATION
  Report Type: 
  Country: None (occurrence: None)
  Receive Date: 20120711
  Receipt Date: 20120625
  Transmission Date: 20120928
  Serious: Yes (Death, Hospitalization)
  Sender: FDA-Public Use
  Company Number: 2012MA008208

PATIENT
  Age: 71 Year
  Sex: Male

DRUGS (2)
  1. G. BILOBA EXTRACT (NO PREF. NAME) [Suspect]
     Indication: DIZZINESS
     Dosage: 40 MG; BID
  2. IBUPROFEN [Suspect]
     Indication: ARTHRALGIA
     Dosage: 600 MG; QD

REACTIONS (4)
  - COMA [None]
  - CEREBROVASCULAR DISORDER [None]
  - BRAIN MIDLINE SHIFT [None]
  - CEREBRAL HAEMORRHAGE [None]
